FAERS Safety Report 8962954 (Version 1)
Quarter: 2012Q4

REPORT INFORMATION
  Report Type: Report from Study
  Country: CA (occurrence: CA)
  Receive Date: 20121213
  Receipt Date: 20121213
  Transmission Date: 20130627
  Serious: Yes (Other)
  Sender: FDA-Public Use
  Company Number: CA-ROCHE-1167985

PATIENT
  Sex: Female
  Weight: 62 kg

DRUGS (9)
  1. OMALIZUMAB [Suspect]
     Indication: ASTHMA
     Route: 058
     Dates: start: 20081212
  2. OMALIZUMAB [Suspect]
     Route: 058
     Dates: start: 20090811
  3. OMALIZUMAB [Suspect]
     Route: 058
     Dates: start: 20120323
  4. ASA (ACETYLSALICYLIC ACID) [Concomitant]
  5. SYMBICORT [Concomitant]
  6. ADVAIR [Concomitant]
  7. LANSOPRAZOLE [Concomitant]
  8. AERIUS [Concomitant]
  9. ALVESCO [Concomitant]

REACTIONS (6)
  - Asthma [Unknown]
  - Nasopharyngitis [Unknown]
  - Drug ineffective [Unknown]
  - Lung infection [Unknown]
  - Influenza like illness [Unknown]
  - Nasopharyngitis [Unknown]
